FAERS Safety Report 24793224 (Version 1)
Quarter: 2024Q4

REPORT INFORMATION
  Report Type: Spontaneous
  Country: US (occurrence: None)
  Receive Date: 20241231
  Receipt Date: 20241231
  Transmission Date: 20250115
  Serious: Yes (Death)
  Sender: Public
  Company Number: None

PATIENT
  Age: 5 Year
  Sex: Female
  Weight: 18.9 kg

DRUGS (8)
  1. CARBOPLATIN [Suspect]
     Active Substance: CARBOPLATIN
     Dates: end: 20240206
  2. CYCLOPHOSPHAMIDE [Suspect]
     Active Substance: CYCLOPHOSPHAMIDE
     Dates: end: 20240209
  3. ZINECARD [Suspect]
     Active Substance: DEXRAZOXANE HYDROCHLORIDE
     Dates: end: 20240114
  4. DOXORUBICIN HYDROCHLORIDE [Suspect]
     Active Substance: DOXORUBICIN HYDROCHLORIDE
     Dates: end: 20240114
  5. ETOPOSIDE [Suspect]
     Active Substance: ETOPOSIDE
     Dates: end: 20240209
  6. IRINOTECAN [Suspect]
     Active Substance: IRINOTECAN
     Dates: end: 20240412
  7. MESNA [Suspect]
     Active Substance: MESNA
     Dates: end: 20240115
  8. VINCRISTINE SULFATE [Suspect]
     Active Substance: VINCRISTINE SULFATE
     Dates: end: 20240415

REACTIONS (1)
  - Hospice care [None]

NARRATIVE: CASE EVENT DATE: 20240910
